FAERS Safety Report 7483722-8 (Version None)
Quarter: 2011Q2

REPORT INFORMATION
  Report Type: 
  Country: None (occurrence: None)
  Receive Date: 20110509
  Receipt Date: 20110419
  Transmission Date: 20111010
  Serious: Yes (Hospitalization, Other)
  Sender: FDA-Public Use
  Company Number: AUR-APL-2011-01481

PATIENT
  Age: 88 Year
  Sex: Male

DRUGS (8)
  1. CARDIOASPIRIN 100 MG [Concomitant]
  2. CASODEX [Concomitant]
  3. MODURETIC 5-50 [Suspect]
     Dosage: 5/50MG-DAILY-ORAL
     Route: 048
     Dates: start: 20090407, end: 20110407
  4. CARVEDILOL [Suspect]
     Dosage: 6.25MG-DAILY-ORAL
     Route: 048
     Dates: start: 20090407, end: 20110407
  5. CORDARONE [Suspect]
     Indication: EXTRASYSTOLES
     Dosage: 200MG-DAILY-ORAL
     Route: 048
     Dates: start: 20090407, end: 20110407
  6. IRBESARTAN [Suspect]
     Dosage: 150MG-DAILY-ORAL
     Route: 048
     Dates: start: 20090407, end: 20110407
  7. ALLOPURINOL 30MG [Concomitant]
  8. DOXAZOSIN MESYLATE [Concomitant]

REACTIONS (5)
  - BLOOD PRESSURE SYSTOLIC INCREASED [None]
  - DRUG INTERACTION [None]
  - IATROGENIC INJURY [None]
  - BRADYCARDIA [None]
  - HYPERKALAEMIA [None]
